FAERS Safety Report 7509164-4 (Version None)
Quarter: 2011Q2

REPORT INFORMATION
  Report Type: 
  Country: None (occurrence: None)
  Receive Date: 20110527
  Receipt Date: 20110523
  Transmission Date: 20111010
  Serious: Yes (Hospitalization, Other)
  Sender: FDA-Public Use
  Company Number: CHPA2011US07052

PATIENT
  Age: 83 Year
  Sex: Female
  Weight: 53.515 kg

DRUGS (3)
  1. EXCEDRIN (MIGRAINE) [Suspect]
     Indication: MUSCULOSKELETAL STIFFNESS
  2. EXCEDRIN (MIGRAINE) [Suspect]
     Indication: PAIN
  3. EXCEDRIN (MIGRAINE) [Suspect]
     Indication: ASTHENIA
     Dosage: 1 DF, QD
     Route: 048

REACTIONS (9)
  - FIBROMYALGIA [None]
  - PAIN [None]
  - SPINAL COLUMN STENOSIS [None]
  - OFF LABEL USE [None]
  - ARTHRITIS [None]
  - HIP ARTHROPLASTY [None]
  - INSOMNIA [None]
  - THERAPEUTIC RESPONSE UNEXPECTED [None]
  - INCORRECT DRUG ADMINISTRATION DURATION [None]
